FAERS Safety Report 7921356-9 (Version None)
Quarter: 2011Q4

REPORT INFORMATION
  Report Type: 
  Country: None (occurrence: None)
  Receive Date: 20111117
  Receipt Date: 20111109
  Transmission Date: 20120403
  Serious: Yes (Other)
  Sender: FDA-Public Use
  Company Number: US-PURDUE-USA-2010-0053482

PATIENT
  Age: 58 Year
  Sex: Male
  Weight: 126.98 kg

DRUGS (3)
  1. OXYCONTIN [Suspect]
     Indication: PAIN
     Dosage: 160 MG, QID
     Route: 048
  2. OXYCONTIN [Suspect]
     Indication: CONGENITAL CYSTIC KIDNEY DISEASE
  3. OXYCONTIN [Suspect]
     Indication: POLYCYSTIC LIVER DISEASE

REACTIONS (8)
  - DYSPEPSIA [None]
  - NAUSEA [None]
  - NEPHRECTOMY [None]
  - WEIGHT INCREASED [None]
  - FOREIGN BODY [None]
  - DRY MOUTH [None]
  - HEADACHE [None]
  - MEDICATION RESIDUE [None]
